FAERS Safety Report 18785127 (Version 1)
Quarter: 2021Q1

REPORT INFORMATION
  Report Type: Report from Study
  Country: CA (occurrence: CA)
  Receive Date: 20210125
  Receipt Date: 20210125
  Transmission Date: 20210419
  Serious: Yes (Other)
  Sender: FDA-Public Use
  Company Number: CA-JNJFOC-20210128647

PATIENT
  Age: 58 Year
  Sex: Female
  Weight: 68.8 kg

DRUGS (1)
  1. REMICADE [Suspect]
     Active Substance: INFLIXIMAB
     Indication: CROHN^S DISEASE
     Route: 042

REACTIONS (3)
  - Polyp [Unknown]
  - Oral herpes [Unknown]
  - Vein rupture [Unknown]

NARRATIVE: CASE EVENT DATE: 20210112
